FAERS Safety Report 9808628 (Version 5)
Quarter: 2015Q2

REPORT INFORMATION
  Report Type: Spontaneous
  Country: US (occurrence: US)
  Receive Date: 20140110
  Receipt Date: 20150525
  Transmission Date: 20150821
  Serious: Yes (Other)
  Sender: FDA-Public Use
  Company Number: US-JNJFOC-20140101808

PATIENT
  Age: 62 Year
  Sex: Female
  Weight: 95.26 kg

DRUGS (18)
  1. FOLIC ACID. [Concomitant]
     Active Substance: FOLIC ACID
     Indication: HAIR DISORDER
     Route: 065
     Dates: start: 2013
  2. REMICADE [Suspect]
     Active Substance: INFLIXIMAB
     Indication: RHEUMATOID ARTHRITIS
     Route: 042
     Dates: start: 201210
  3. REMICADE [Suspect]
     Active Substance: INFLIXIMAB
     Indication: RHEUMATOID ARTHRITIS
     Route: 042
  4. LORATADINE. [Concomitant]
     Active Substance: LORATADINE
     Route: 065
     Dates: start: 2011
  5. NITROFURANTOIN. [Concomitant]
     Active Substance: NITROFURANTOIN
     Indication: BLADDER DISORDER
     Route: 065
     Dates: start: 2005
  6. HYDROCODONE [Concomitant]
     Active Substance: HYDROCODONE
     Indication: PAIN
     Route: 065
     Dates: start: 2013
  7. FOLIC ACID. [Concomitant]
     Active Substance: FOLIC ACID
     Indication: BONE DISORDER
     Route: 065
     Dates: start: 2013
  8. LEFLUNOMIDE. [Concomitant]
     Active Substance: LEFLUNOMIDE
     Indication: ARTHRITIS
     Route: 048
     Dates: start: 2012
  9. VITAMIN D [Concomitant]
     Active Substance: CHOLECALCIFEROL
     Route: 065
     Dates: start: 2005
  10. FAMOTIDINE. [Concomitant]
     Active Substance: FAMOTIDINE
     Indication: GASTRIC DISORDER
     Route: 065
     Dates: start: 2013
  11. REMICADE [Suspect]
     Active Substance: INFLIXIMAB
     Indication: RHEUMATOID ARTHRITIS
     Route: 042
     Dates: start: 20131220
  12. OXYBUTYNIN [Concomitant]
     Active Substance: OXYBUTYNIN
     Indication: BLADDER DISORDER
     Route: 065
     Dates: start: 2005
  13. FERROUS SULFATE [Concomitant]
     Active Substance: FERROUS SULFATE\FERROUS SULFATE, DRIED
     Indication: MINERAL SUPPLEMENTATION
     Route: 065
     Dates: start: 2012
  14. BENADRYL [Concomitant]
     Active Substance: DIPHENHYDRAMINE HYDROCHLORIDE
     Indication: MULTIPLE ALLERGIES
  15. POTASSIUM [Concomitant]
     Active Substance: POTASSIUM
     Indication: BONE DISORDER
     Route: 065
     Dates: start: 2013
  16. LOSARTAN [Concomitant]
     Active Substance: LOSARTAN
     Indication: BLOOD PRESSURE
     Route: 065
     Dates: start: 2011
  17. MAGNESIUM OXIDE. [Concomitant]
     Active Substance: MAGNESIUM OXIDE
     Indication: ELECTROLYTE IMBALANCE
     Route: 065
     Dates: start: 2012
  18. ACETAM [Concomitant]
     Indication: PAIN
     Route: 065

REACTIONS (2)
  - Drug ineffective [Recovered/Resolved]
  - Insomnia [Recovering/Resolving]

NARRATIVE: CASE EVENT DATE: 201312
